FAERS Safety Report 24734057 (Version 1)
Quarter: 2024Q4

REPORT INFORMATION
  Report Type: Spontaneous
  Country: RS (occurrence: RS)
  Receive Date: 20241214
  Receipt Date: 20241214
  Transmission Date: 20250114
  Serious: Yes (Hospitalization, Other)
  Sender: AMGEN
  Company Number: RS-AMGEN-SRBSP2024240533

PATIENT
  Age: 69 Year
  Sex: Male

DRUGS (6)
  1. NPLATE [Suspect]
     Active Substance: ROMIPLOSTIM
     Indication: Immune thrombocytopenia
     Dosage: UNK (INITIAL 3 MCG/KGBM, INCREASED TO 9 MCG/KGBM , WITH FLUCTUATIONS)
     Route: 058
  2. RITUXIMAB [Suspect]
     Active Substance: RITUXIMAB
     Indication: Product used for unknown indication
     Dosage: UNK
     Route: 065
  3. LISINOPRIL [Concomitant]
     Active Substance: LISINOPRIL
     Indication: Hypertension
     Dosage: UNK
  4. NEBIVOLOL [Concomitant]
     Active Substance: NEBIVOLOL
     Indication: Hypertension
     Dosage: UNK
  5. INDAPAMIDE [Concomitant]
     Active Substance: INDAPAMIDE
     Indication: Hypertension
     Dosage: UNK
  6. BROMAZEPAM [Concomitant]
     Active Substance: BROMAZEPAM
     Indication: Hypertension
     Dosage: UNK

REACTIONS (11)
  - Demyelinating polyneuropathy [Unknown]
  - Petechiae [Unknown]
  - Spinal disorder [Unknown]
  - Bullous haemorrhagic dermatosis [Unknown]
  - Platelet count decreased [Recovering/Resolving]
  - Ecchymosis [Unknown]
  - Bronchiectasis [Unknown]
  - C-reactive protein increased [Unknown]
  - Hypotension [Unknown]
  - Pyrexia [Unknown]
  - Renal cyst [Unknown]

NARRATIVE: CASE EVENT DATE: 20240201
